FAERS Safety Report 9623658 (Version 1)
Quarter: 2013Q4

REPORT INFORMATION
  Report Type: Spontaneous
  Country: US (occurrence: US)
  Receive Date: 20131015
  Receipt Date: 20131015
  Transmission Date: 20140711
  Serious: Yes (Hospitalization, Other)
  Sender: FDA-Public Use
  Company Number: PHEH2013US021137

PATIENT
  Sex: Female

DRUGS (7)
  1. DIOVAN [Suspect]
     Indication: HYPERTENSION
     Dosage: 320 MG, QD
     Route: 048
  2. NIFEDIPINE [Concomitant]
     Indication: HYPERTENSION
     Dosage: 60 MG, QD
     Route: 048
  3. LIPITOR [Concomitant]
     Dosage: UNK UKN, UNK
  4. ALLEGRA [Concomitant]
     Dosage: UNK UKN, UNK
  5. OMEPRAZOLE [Concomitant]
     Dosage: UNK UKN, UNK
  6. XANAX [Concomitant]
     Dosage: UNK UKN, UNK
  7. HUMULIN [Concomitant]
     Dosage: UNK UKN, UNK

REACTIONS (11)
  - Neoplasm malignant [Unknown]
  - Anxiety [Unknown]
  - Panic attack [Unknown]
  - Tension [Unknown]
  - Mood altered [Unknown]
  - Hypertension [Unknown]
  - Diabetes mellitus [Unknown]
  - Arthritis [Unknown]
  - Fall [Unknown]
  - Gastrooesophageal reflux disease [Unknown]
  - Nerve compression [Unknown]
